FAERS Safety Report 6784214-1 (Version None)
Quarter: 2010Q2

REPORT INFORMATION
  Report Type: 
  Country: None (occurrence: None)
  Receive Date: 20100622
  Receipt Date: 20100607
  Transmission Date: 20101027
  Serious: Yes (Death, Life-Threatening, Hospitalization, Other)
  Sender: FDA-Public Use
  Company Number: TR-ELI_LILLY_AND_COMPANY-TR201006002761

PATIENT
  Age: 36 Year
  Sex: Male

DRUGS (4)
  1. OLANZAPINE [Suspect]
     Dosage: 5 MG, UNKNOWN
     Route: 065
  2. HALOPERIDOL [Concomitant]
     Dosage: UNK, UNKNOWN
     Route: 065
  3. CHLORPROMAZINE [Concomitant]
     Dosage: UNK, UNKNOWN
     Route: 065
  4. RISPERIDONE [Concomitant]
     Dosage: UNK, UNKNOWN
     Route: 065

REACTIONS (5)
  - CARDIO-RESPIRATORY ARREST [None]
  - DRUG INTERACTION [None]
  - LOSS OF CONSCIOUSNESS [None]
  - MEDICATION ERROR [None]
  - SPASMODIC DYSPHONIA [None]
